FAERS Safety Report 8179282-9 (Version None)
Quarter: 2012Q1

REPORT INFORMATION
  Report Type: 
  Country: None (occurrence: None)
  Receive Date: 20120229
  Receipt Date: 20120229
  Transmission Date: 20120608
  Serious: No
  Sender: FDA-Public Use
  Company Number: None

PATIENT
  Age: 60 Year
  Sex: Male
  Weight: 79.3795 kg

DRUGS (1)
  1. JALYN [Suspect]
     Indication: POLLAKIURIA
     Dosage: 1 DAILY
     Dates: start: 20110427, end: 20120111

REACTIONS (10)
  - DEPRESSION [None]
  - NASOPHARYNGITIS [None]
  - CHILLS [None]
  - DYSPNOEA [None]
  - ERECTILE DYSFUNCTION [None]
  - HEADACHE [None]
  - PHARYNGEAL DISORDER [None]
  - DIZZINESS [None]
  - GASTRIC DISORDER [None]
  - TESTICULAR PAIN [None]
